FAERS Safety Report 5213292-6 (Version None)
Quarter: 2007Q1

REPORT INFORMATION
  Report Type: 
  Country: None (occurrence: None)
  Receive Date: 20070119
  Receipt Date: 20061208
  Transmission Date: 20070707
  Serious: Yes (Hospitalization, Other)
  Sender: FDA-Public Use
  Company Number: US-JNJFOC-20061101259

PATIENT
  Sex: Female

DRUGS (7)
  1. ORTHO EVRA [Suspect]
     Indication: DRUG USE FOR UNKNOWN INDICATION
     Dates: start: 20020801, end: 20030801
  2. POTASSIUM ACETATE [Concomitant]
     Indication: UNEVALUABLE EVENT
  3. PRENATAL VITAMINS [Concomitant]
     Indication: UNEVALUABLE EVENT
  4. FOLIC ACID [Concomitant]
  5. IRON [Concomitant]
     Indication: UNEVALUABLE EVENT
  6. PREDNISONE [Concomitant]
     Indication: UNEVALUABLE EVENT
     Route: 048
  7. IMURAN [Concomitant]
     Indication: UNEVALUABLE EVENT

REACTIONS (2)
  - COLITIS ULCERATIVE [None]
  - PULMONARY EMBOLISM [None]
